FAERS Safety Report 11102226 (Version 1)
Quarter: 2015Q2

REPORT INFORMATION
  Report Type: Spontaneous
  Country: US (occurrence: None)
  Receive Date: 20150507
  Receipt Date: 20150507
  Transmission Date: 20150821
  Serious: Yes (Hospitalization)
  Sender: FDA-Public Use
  Company Number: US-001901

PATIENT
  Sex: Female

DRUGS (4)
  1. SODIUM CHLORIDE. [Concomitant]
     Active Substance: SODIUM CHLORIDE
  2. DIUREX WATER PILLS [Concomitant]
     Active Substance: CAFFEINE\MAGNESIUM SALICYLATE
  3. SOLUTIONS FOR PARENTERAL NUTRITION [Concomitant]
     Active Substance: AMINO ACIDS\DEXTROSE\ELECTROLYTES NOS
  4. GATTEX [Suspect]
     Active Substance: TEDUGLUTIDE\WATER
     Indication: SHORT-BOWEL SYNDROME
     Dosage: DF
     Route: 058

REACTIONS (4)
  - Faeces hard [None]
  - Hypotension [None]
  - Loss of consciousness [None]
  - Blood sodium decreased [None]
